FAERS Safety Report 14915030 (Version 1)
Quarter: 2018Q2

REPORT INFORMATION
  Report Type: Spontaneous
  Country: US (occurrence: US)
  Receive Date: 20180501
  Receipt Date: 20180501
  Transmission Date: 20180711
  Serious: No
  Sender: FDA-Public Use
  Company Number: None

PATIENT

DRUGS (2)
  1. HEPARIN SODIUM. [Suspect]
     Active Substance: HEPARIN SODIUM
  2. HEPARIN [Suspect]
     Active Substance: HEPARIN SODIUM

REACTIONS (1)
  - Product appearance confusion [None]

NARRATIVE: CASE EVENT DATE: 20180425
